FAERS Safety Report 25186611 (Version 1)
Quarter: 2025Q2

REPORT INFORMATION
  Report Type: Spontaneous
  Country: GB (occurrence: GB)
  Receive Date: 20250411
  Receipt Date: 20250411
  Transmission Date: 20250717
  Serious: Yes (Hospitalization, Other)
  Sender: TWI PHARMACEUTICALS
  Company Number: GB-TWI PHARMACEUTICAL, INC-20250300736

PATIENT
  Age: 14 Year
  Sex: Male

DRUGS (2)
  1. FLUOXETINE [Suspect]
     Active Substance: FLUOXETINE HYDROCHLORIDE
     Indication: Depression
     Route: 065
  2. ACETAMINOPHEN [Concomitant]
     Active Substance: ACETAMINOPHEN
     Indication: Pain in extremity
     Route: 065

REACTIONS (4)
  - Rhabdomyolysis [Unknown]
  - Serotonin syndrome [Recovering/Resolving]
  - Suicide attempt [Unknown]
  - Intentional overdose [Unknown]
